FAERS Safety Report 17811402 (Version 4)
Quarter: 2020Q3

REPORT INFORMATION
  Report Type: Spontaneous
  Country: US (occurrence: US)
  Receive Date: 20200521
  Receipt Date: 20200923
  Transmission Date: 20201102
  Serious: Yes (Other)
  Sender: FDA-Public Use
  Company Number: US-PFIZER INC-2020201309

PATIENT
  Age: 84 Year
  Sex: Male

DRUGS (1)
  1. XELJANZ XR [Suspect]
     Active Substance: TOFACITINIB CITRATE
     Dosage: 11 MG
     Dates: start: 202002

REACTIONS (6)
  - Product dose omission issue [Unknown]
  - Upper-airway cough syndrome [Unknown]
  - Arthralgia [Not Recovered/Not Resolved]
  - Increased upper airway secretion [Unknown]
  - Depression [Unknown]
  - Decreased appetite [Unknown]
